FAERS Safety Report 9482322 (Version 3)
Quarter: 2014Q1

REPORT INFORMATION
  Report Type: Spontaneous
  Country: US (occurrence: US)
  Receive Date: 20130828
  Receipt Date: 20140124
  Transmission Date: 20141002
  Serious: Yes (Other)
  Sender: FDA-Public Use
  Company Number: US-JNJFOC-20130812748

PATIENT
  Age: 86 Year
  Sex: Female
  Weight: 70.31 kg

DRUGS (3)
  1. XARELTO [Suspect]
     Indication: CEREBROVASCULAR ACCIDENT PROPHYLAXIS
     Route: 048
     Dates: start: 20130401, end: 20130731
  2. XARELTO [Suspect]
     Indication: ATRIAL FIBRILLATION
     Route: 048
     Dates: start: 20130401, end: 20130731
  3. ACETYL SALICYLIC ACID [Concomitant]
     Route: 065

REACTIONS (5)
  - Balance disorder [Recovered/Resolved]
  - Gait disturbance [Recovered/Resolved]
  - Wrist fracture [Recovering/Resolving]
  - Hand fracture [Recovering/Resolving]
  - Fall [Recovered/Resolved with Sequelae]
